FAERS Safety Report 5928845-7 (Version None)
Quarter: 2008Q4

REPORT INFORMATION
  Report Type: 
  Country: None (occurrence: None)
  Receive Date: 20081020
  Receipt Date: 20081002
  Transmission Date: 20090506
  Serious: Yes (Hospitalization)
  Sender: FDA-Public Use
  Company Number: 8037820

PATIENT
  Age: 11 Year
  Sex: Male

DRUGS (2)
  1. METHYLPHENIDATE HCL [Suspect]
     Dosage: 7.5 MG /D
  2. METHYLPHENIDATE HCL [Suspect]
     Dosage: 15 MG /D

REACTIONS (9)
  - ANXIETY [None]
  - HYPERHIDROSIS [None]
  - HYPERTENSION [None]
  - MUSCLE SPASMS [None]
  - NAUSEA [None]
  - OVERDOSE [None]
  - PALPITATIONS [None]
  - PARAESTHESIA [None]
  - PERIPHERAL COLDNESS [None]
